FAERS Safety Report 5332412-6 (Version None)
Quarter: 2007Q2

REPORT INFORMATION
  Report Type: 
  Country: None (occurrence: None)
  Receive Date: 20070522
  Receipt Date: 20070522
  Transmission Date: 20071010
  Serious: Yes (Other)
  Sender: FDA-Public Use
  Company Number: None

PATIENT
  Age: 68 Year
  Sex: Female
  Weight: 81.6475 kg

DRUGS (2)
  1. ALTACE [Suspect]
     Indication: HYPERTENSION
     Dosage: 5 MG TWICE DAILY PO
     Route: 048
     Dates: start: 20020101, end: 20020101
  2. ALTACE [Suspect]
     Dosage: 2.5 MG TWICE DAILY PO
     Route: 048
     Dates: start: 20070501, end: 20070501

REACTIONS (3)
  - BLOOD PRESSURE FLUCTUATION [None]
  - MEDICATION RESIDUE [None]
  - PHARMACEUTICAL PRODUCT COMPLAINT [None]
